FAERS Safety Report 4960264-2 (Version None)
Quarter: 2006Q1

REPORT INFORMATION
  Report Type: 
  Country: None (occurrence: None)
  Receive Date: 20060328
  Receipt Date: 20060315
  Transmission Date: 20060701
  Serious: Yes (Hospitalization)
  Sender: FDA-Public Use
  Company Number: 2006035944

PATIENT
  Age: 47 Year
  Sex: Female

DRUGS (1)
  1. TOLTERODINE TARTRATE [Suspect]
     Indication: STRESS INCONTINENCE
     Dosage: 4 MG (2 MG, 2 IN 1 D), ORAL
     Route: 048

REACTIONS (1)
  - VAGINAL OPERATION [None]
